FAERS Safety Report 6234299-6 (Version None)
Quarter: 2009Q2

REPORT INFORMATION
  Report Type: 
  Country: None (occurrence: None)
  Receive Date: 20090618
  Receipt Date: 20090609
  Transmission Date: 20091009
  Serious: Yes (Other)
  Sender: FDA-Public Use
  Company Number: US-JNJFOC-20090603557

PATIENT
  Sex: Female
  Weight: 54.43 kg

DRUGS (2)
  1. TOPIRAMATE [Suspect]
     Indication: DRUG THERAPY
     Route: 048
  2. HALDOL [Concomitant]
     Indication: PSYCHOTIC DISORDER
     Route: 048

REACTIONS (7)
  - AGITATION [None]
  - DISTURBANCE IN SOCIAL BEHAVIOUR [None]
  - DRUG INEFFECTIVE [None]
  - NAUSEA [None]
  - OBSESSIVE-COMPULSIVE DISORDER [None]
  - POLYMENORRHOEA [None]
  - SOMNOLENCE [None]
